FAERS Safety Report 7219966-X (Version None)
Quarter: 2011Q1

REPORT INFORMATION
  Report Type: 
  Country: None (occurrence: None)
  Receive Date: 20110111
  Receipt Date: 20110104
  Transmission Date: 20110831
  Serious: Yes (Hospitalization)
  Sender: FDA-Public Use
  Company Number: US-US-EMD SERONO, INC.-231391J10USA

PATIENT
  Sex: Female
  Weight: 64 kg

DRUGS (17)
  1. FERROUS GLUCONATE [Concomitant]
  2. KLOR-CON [Concomitant]
  3. ZANTAC [Concomitant]
  4. NEXIUM [Concomitant]
  5. ZOFRAN [Concomitant]
  6. NEURONTIN [Concomitant]
  7. SYNTHROID [Concomitant]
  8. IBUPROFEN [Concomitant]
  9. ZOLOFT [Concomitant]
  10. CRESTOR [Concomitant]
  11. TYLENOL [Concomitant]
  12. ALEVE [Concomitant]
  13. PROVIGIL [Concomitant]
  14. REBIF [Suspect]
     Indication: MULTIPLE SCLEROSIS
     Route: 058
     Dates: start: 20040705, end: 20100901
  15. HUMALOG [Concomitant]
     Indication: DIABETES MELLITUS
  16. ATENOLOL [Concomitant]
  17. DIOVAN [Concomitant]

REACTIONS (4)
  - INJECTION SITE REACTION [None]
  - UPPER LIMB FRACTURE [None]
  - INFLUENZA LIKE ILLNESS [None]
  - FALL [None]
